FAERS Safety Report 4299193-9 (Version None)
Quarter: 2004Q1

REPORT INFORMATION
  Report Type: 
  Country: None (occurrence: None)
  Receive Date: 20040217
  Receipt Date: 20040205
  Transmission Date: 20041129
  Serious: Yes (Hospitalization)
  Sender: FDA-Public Use
  Company Number: 04P-163-0249966-00

PATIENT
  Age: 61 Year
  Sex: Female
  Weight: 99.7913 kg

DRUGS (3)
  1. HUMIRA [Suspect]
     Indication: RHEUMATOID ARTHRITIS
     Dosage: 40 MG, 1 IN 2 WK, SUBCUTANEOUS
     Route: 058
     Dates: start: 20031101, end: 20031201
  2. INFLIXIMAB [Suspect]
     Indication: RHEUMATOID ARTHRITIS
     Dosage: 1 IN 5 WK, INTRAVENOUS
     Route: 042
     Dates: start: 20010501, end: 20031030
  3. METHOTREXATE SODIUM [Concomitant]

REACTIONS (3)
  - CHEST PAIN [None]
  - LUPUS-LIKE SYNDROME [None]
  - PULMONARY OEDEMA [None]
